FAERS Safety Report 6962973-2 (Version None)
Quarter: 2010Q3

REPORT INFORMATION
  Report Type: 
  Country: None (occurrence: None)
  Receive Date: 20100902
  Receipt Date: 20100823
  Transmission Date: 20110219
  Serious: Yes (Other)
  Sender: FDA-Public Use
  Company Number: DE-ROCHE-722514

PATIENT
  Age: 56 Year
  Sex: Male

DRUGS (5)
  1. BEVACIZUMAB [Suspect]
     Dosage: ON DAY ONE OF EACH CYCLE.
     Route: 065
     Dates: start: 20070501
  2. GEMCITABINE [Suspect]
     Dosage: ON DAY ONE OF EACH CYCLE
     Route: 065
     Dates: start: 20070501
  3. OXALIPLATIN [Suspect]
     Dosage: ON DAY 2 OF EACH CYCLE
     Route: 065
     Dates: start: 20070501
  4. SORAFENIB [Suspect]
     Route: 065
     Dates: start: 20071001
  5. SORAFENIB [Suspect]
     Route: 065

REACTIONS (9)
  - COUGH [None]
  - DIARRHOEA [None]
  - DYSPHONIA [None]
  - ERYTHEMA [None]
  - MOUTH ULCERATION [None]
  - PALMAR-PLANTAR ERYTHRODYSAESTHESIA SYNDROME [None]
  - PANCYTOPENIA [None]
  - RENAL IMPAIRMENT [None]
  - WEIGHT DECREASED [None]
